FAERS Safety Report 8341381-6 (Version None)
Quarter: 2012Q2

REPORT INFORMATION
  Report Type: 
  Country: None (occurrence: None)
  Receive Date: 20120507
  Receipt Date: 20091202
  Transmission Date: 20120825
  Serious: No
  Sender: FDA-Public Use
  Company Number: US-TEVA-2009029462

PATIENT
  Sex: Female
  Weight: 66.738 kg

DRUGS (17)
  1. DECADRON [Concomitant]
     Indication: PREMEDICATION
  2. SYNTHROID [Concomitant]
  3. TRIMETHOPRIM + SULFAMETHOXAZOLE [Concomitant]
     Indication: PROPHYLAXIS
     Dates: start: 20090901
  4. DOXAZOSIN MESYLATE [Concomitant]
  5. DOCUSATE SODIUM [Concomitant]
  6. RITUXIMAB [Concomitant]
     Indication: NON-HODGKIN'S LYMPHOMA
     Dates: start: 20090801
  7. TREANDA [Suspect]
     Indication: NON-HODGKIN'S LYMPHOMA
     Route: 042
     Dates: start: 20090801
  8. LORAZEPAM [Concomitant]
  9. AMLODIPINE [Concomitant]
  10. FUROSEMIDE [Concomitant]
  11. POTASSIUM CHLORIDE [Concomitant]
  12. PRILOSEC [Concomitant]
  13. LYRICA [Concomitant]
  14. ASPIRIN [Concomitant]
  15. COZAAR [Concomitant]
  16. NORTRIPTYLINE HCL [Concomitant]
  17. FAMCICLOVIR [Concomitant]
     Indication: PROPHYLAXIS
     Dates: start: 20090901

REACTIONS (2)
  - DYSPNOEA EXERTIONAL [None]
  - WHITE BLOOD CELL COUNT DECREASED [None]
